FAERS Safety Report 4724072-X (Version None)
Quarter: 2005Q3

REPORT INFORMATION
  Report Type: 
  Country: None (occurrence: None)
  Receive Date: 20050722
  Receipt Date: 20050718
  Transmission Date: 20060218
  Serious: Yes (Other)
  Sender: FDA-Public Use
  Company Number: 2005FR-00139

PATIENT
  Age: 32 Year
  Sex: Female

DRUGS (9)
  1. FLUOXETINE [Suspect]
  2. SULPIRIDE [Concomitant]
  3. PAROXETINE HCL [Concomitant]
  4. CLOZAPINE [Concomitant]
  5. FLUPENTHIXOL [Concomitant]
  6. VENLAFAZINE [Concomitant]
  7. RISPERIDONE [Concomitant]
  8. ZOPICLONE [Concomitant]
  9. CITALOPRAM [Concomitant]

REACTIONS (16)
  - DEPRESSION [None]
  - DIZZINESS [None]
  - DRUG INTERACTION [None]
  - FATIGUE [None]
  - GRAND MAL CONVULSION [None]
  - HALLUCINATION, AUDITORY [None]
  - HEADACHE [None]
  - LOSS OF CONSCIOUSNESS [None]
  - MENTAL IMPAIRMENT [None]
  - ORTHOSTATIC HYPOTENSION [None]
  - PERSECUTORY DELUSION [None]
  - SALIVARY HYPERSECRETION [None]
  - SCHIZOPHRENIA [None]
  - SYNCOPE VASOVAGAL [None]
  - TONGUE INJURY [None]
  - URINARY INCONTINENCE [None]
